FAERS Safety Report 8054479-7 (Version None)
Quarter: 2012Q1

REPORT INFORMATION
  Report Type: 
  Country: None (occurrence: None)
  Receive Date: 20120118
  Receipt Date: 20120111
  Transmission Date: 20120608
  Serious: Yes (Hospitalization, Other)
  Sender: FDA-Public Use
  Company Number: US-MERCK-1012USA03779

PATIENT
  Age: 52 Year
  Sex: Female

DRUGS (5)
  1. FOSAMAX [Suspect]
     Indication: OSTEOPENIA
     Route: 048
     Dates: start: 19960101, end: 20100803
  2. CORTISONE [Concomitant]
     Route: 065
  3. HORMONES (UNSPECIFIED) [Concomitant]
     Route: 048
     Dates: start: 19800101, end: 20100101
  4. FOSAMAX [Suspect]
     Route: 048
     Dates: start: 19960101, end: 20060101
  5. ALENDRONATE SODIUM [Suspect]
     Indication: OSTEOPOROSIS
     Route: 048
     Dates: start: 20080331, end: 20100803

REACTIONS (45)
  - PROCEDURAL HAEMORRHAGE [None]
  - ABDOMINAL PAIN [None]
  - BALANCE DISORDER [None]
  - BENIGN BREAST NEOPLASM [None]
  - HOT FLUSH [None]
  - DENTAL PLAQUE [None]
  - METABOLIC SYNDROME [None]
  - FEMUR FRACTURE [None]
  - HYPERTENSION [None]
  - NEPHROLITHIASIS [None]
  - OSTEOARTHRITIS [None]
  - GAIT DISTURBANCE [None]
  - POLLAKIURIA [None]
  - TRANSAMINASES ABNORMAL [None]
  - BACK PAIN [None]
  - UTERINE DISORDER [None]
  - FATIGUE [None]
  - VITAMIN D DEFICIENCY [None]
  - PAROTITIS [None]
  - ANAEMIA POSTOPERATIVE [None]
  - FLUSHING [None]
  - CHEST DISCOMFORT [None]
  - ABNORMAL WEIGHT GAIN [None]
  - BLOOD POTASSIUM DECREASED [None]
  - ARTHRALGIA [None]
  - LOW TURNOVER OSTEOPATHY [None]
  - CAROTID BRUIT [None]
  - FALL [None]
  - OOPHORECTOMY [None]
  - GALLBLADDER DISORDER [None]
  - BLOOD GLUCOSE INCREASED [None]
  - SEBORRHOEA [None]
  - NIGHT SWEATS [None]
  - MELANOCYTIC NAEVUS [None]
  - LIVER FUNCTION TEST ABNORMAL [None]
  - DIZZINESS [None]
  - PELVIC FRACTURE [None]
  - HIATUS HERNIA [None]
  - HEPATIC STEATOSIS [None]
  - ULCER [None]
  - MUSCULOSKELETAL DISCOMFORT [None]
  - SENSORY LEVEL ABNORMAL [None]
  - LACERATION [None]
  - CONSTIPATION [None]
  - DYSPNOEA [None]
